FAERS Safety Report 10959121 (Version 2)
Quarter: 2015Q2

REPORT INFORMATION
  Report Type: Spontaneous
  Country: US (occurrence: US)
  Receive Date: 20150327
  Receipt Date: 20150525
  Transmission Date: 20150821
  Serious: No
  Sender: FDA-Public Use
  Company Number: US-JNJFOC-20140317303

PATIENT
  Sex: Female

DRUGS (2)
  1. ORTHO EVRA [Suspect]
     Active Substance: ETHINYL ESTRADIOL\NORELGESTROMIN
     Indication: MENSTRUAL DISORDER
     Route: 062
  2. FENTANYL. [Suspect]
     Active Substance: FENTANYL
     Indication: MENSTRUAL DISORDER
     Route: 065

REACTIONS (2)
  - Device failure [Unknown]
  - Product use issue [Unknown]
